FAERS Safety Report 9311554 (Version 1)
Quarter: 2013Q2

REPORT INFORMATION
  Report Type: Spontaneous
  Country: US (occurrence: US)
  Receive Date: 20130528
  Receipt Date: 20130528
  Transmission Date: 20140414
  Serious: Yes (Other)
  Sender: FDA-Public Use
  Company Number: US-BAXTER-2013BAX018426

PATIENT
  Age: 32 Year
  Sex: Female

DRUGS (6)
  1. LIDOCAINE HYDROCHLORIDE AND 5% DEXTROSE INJECTION, USP [Suspect]
     Indication: TACHYCARDIA FOETAL
     Dosage: LOADING
     Route: 040
  2. LIDOCAINE HYDROCHLORIDE AND 5% DEXTROSE INJECTION, USP [Suspect]
     Route: 042
  3. MAGNESIUM [Suspect]
     Indication: TACHYCARDIA FOETAL
     Route: 042
  4. MAGNESIUM [Suspect]
     Indication: THREATENED LABOUR
     Route: 042
  5. MEXILETINE [Suspect]
     Indication: FOETAL ARRHYTHMIA
     Route: 065
  6. AMIODARONE [Suspect]
     Indication: FOETAL ARRHYTHMIA
     Route: 048

REACTIONS (3)
  - Premature delivery [Recovered/Resolved]
  - Premature labour [Recovered/Resolved]
  - Exposure during pregnancy [Recovered/Resolved]
